FAERS Safety Report 6917382-9 (Version None)
Quarter: 2010Q3

REPORT INFORMATION
  Report Type: 
  Country: None (occurrence: None)
  Receive Date: 20100805
  Receipt Date: 20100722
  Transmission Date: 20110219
  Serious: Yes (Hospitalization)
  Sender: FDA-Public Use
  Company Number: ALD1-JP-2010-0038

PATIENT
  Age: 38 Year
  Sex: Female

DRUGS (3)
  1. ALDOMET [Suspect]
     Indication: HYPERTENSION
     Dosage: 750 MG (250 MG, 3 IN 1 D), 500 MG (250 MG, 2 IN 1 D), ORAL
     Route: 048
     Dates: start: 20100629, end: 20100702
  2. ALDOMET [Suspect]
     Indication: HYPERTENSION
     Dosage: 750 MG (250 MG, 3 IN 1 D), 500 MG (250 MG, 2 IN 1 D), ORAL
     Route: 048
     Dates: start: 20100705, end: 20100708
  3. FESIN (SACCHARATED IRON OXIDE) (SACCHARATED IRON OXIDE) [Suspect]
     Indication: ANAEMIA
     Dosage: INJECTION
     Route: 051
     Dates: start: 20100703, end: 20100708

REACTIONS (2)
  - DRUG EXPOSURE DURING PREGNANCY [None]
  - HEPATIC FUNCTION ABNORMAL [None]
